FAERS Safety Report 10029198 (Version 3)
Quarter: 2014Q2

REPORT INFORMATION
  Report Type: Spontaneous
  Country: JP (occurrence: JP)
  Receive Date: 20140321
  Receipt Date: 20140509
  Transmission Date: 20141212
  Serious: Yes (Other)
  Sender: FDA-Public Use
  Company Number: JP-ASTRAZENECA-2014SE19694

PATIENT
  Age: 20144 Day
  Sex: Female
  Weight: 42 kg

DRUGS (11)
  1. SEROQUEL [Suspect]
     Indication: DELUSIONAL DISORDER, UNSPECIFIED TYPE
     Route: 048
     Dates: start: 20131104, end: 20131110
  2. SEROQUEL [Suspect]
     Indication: DELUSIONAL DISORDER, UNSPECIFIED TYPE
     Route: 048
     Dates: start: 20131111, end: 20131216
  3. SEROQUEL [Suspect]
     Indication: DELUSIONAL DISORDER, UNSPECIFIED TYPE
     Route: 048
     Dates: start: 20131217, end: 20140106
  4. SEROQUEL [Suspect]
     Indication: DELUSIONAL DISORDER, UNSPECIFIED TYPE
     Route: 048
     Dates: start: 20140107, end: 20140121
  5. RISPERIDONE [Concomitant]
     Indication: DELUSIONAL DISORDER, UNSPECIFIED TYPE
     Route: 048
     Dates: start: 20130925, end: 20131110
  6. HALCION [Concomitant]
     Indication: INSOMNIA
     Dates: start: 20131007
  7. BIBITTOACE [Concomitant]
     Indication: INSOMNIA
     Route: 048
     Dates: start: 20131007
  8. AKINETON [Concomitant]
     Indication: AKATHISIA
     Route: 048
     Dates: start: 20131021
  9. MAGMITT [Concomitant]
     Indication: CONSTIPATION
     Route: 048
     Dates: start: 20131007, end: 20140106
  10. FERROMIA [Concomitant]
     Indication: IRON DEFICIENCY ANAEMIA
     Route: 048
     Dates: start: 20131021
  11. SERENACE [Concomitant]
     Indication: DELUSIONAL DISORDER, UNSPECIFIED TYPE
     Dates: start: 20130913, end: 20130924

REACTIONS (2)
  - Alopecia [Recovered/Resolved]
  - Off label use [Unknown]
